FAERS Safety Report 7907213-2 (Version None)
Quarter: 2011Q4

REPORT INFORMATION
  Report Type: 
  Country: None (occurrence: None)
  Receive Date: 20111110
  Receipt Date: 20111103
  Transmission Date: 20120403
  Serious: Yes (Hospitalization)
  Sender: FDA-Public Use
  Company Number: US-ABBOTT-11P-163-0871428-00

PATIENT
  Sex: Male

DRUGS (2)
  1. HUMIRA [Suspect]
     Indication: PSORIASIS
     Dates: start: 20110301
  2. BUPROPION HCL [Concomitant]
     Indication: DEPRESSION

REACTIONS (6)
  - PAIN [None]
  - LIMB INJURY [None]
  - UPPER LIMB FRACTURE [None]
  - ROAD TRAFFIC ACCIDENT [None]
  - FALL [None]
  - PHANTOM PAIN [None]
